FAERS Safety Report 15195818 (Version 1)
Quarter: 2018Q3

REPORT INFORMATION
  Report Type: Spontaneous
  Country: US (occurrence: US)
  Receive Date: 20180725
  Receipt Date: 20180725
  Transmission Date: 20181010
  Serious: No
  Sender: FDA-Public Use
  Company Number: US-PFIZER INC-2018298110

PATIENT
  Age: 75 Year
  Sex: Male
  Weight: 77.11 kg

DRUGS (6)
  1. GABAPENTIN. [Suspect]
     Active Substance: GABAPENTIN
     Dosage: 600MG IN THE MORNING, 600MG IN THE AFTERNOON, AND 900MG AT NIGHT
     Dates: end: 20180719
  2. LEVOCETIRIZINE HYDROCHLORIDE [Concomitant]
     Active Substance: LEVOCETIRIZINE HYDROCHLORIDE
     Indication: HYPERSENSITIVITY
     Dosage: 5 MG, 1X/DAY (5 MG TABLET BY MOUTH ONCE A DAY)
     Route: 048
  3. AMLODIPINE [Concomitant]
     Active Substance: AMLODIPINE BESYLATE
     Indication: HYPERTENSION
     Dosage: 10 MG, 1X/DAY (10 MG TABLET ONCE A DAY BY MOUTH)
     Route: 048
  4. CHLORTHALIDONE. [Concomitant]
     Active Substance: CHLORTHALIDONE
     Indication: HYPERTENSION
     Dosage: 25 MG, 1X/DAY (25 MG TABLET ONCE A DAY BY MOUTH)
     Route: 048
  5. FLONASE [Concomitant]
     Active Substance: FLUTICASONE PROPIONATE
     Indication: HYPERSENSITIVITY
     Dosage: 100 UG, 1X/DAY (NASAL SPRAY 50 MCG EACH NARE ONCE A DAY)
  6. GABAPENTIN. [Suspect]
     Active Substance: GABAPENTIN
     Indication: DIABETIC NEUROPATHY
     Dosage: 600MG IN THE MORNING, 600MG IN THE AFTERNOON, AND 900MG AT NIGHT
     Dates: end: 20180719

REACTIONS (1)
  - Drug ineffective for unapproved indication [Unknown]
